FAERS Safety Report 9186799 (Version 1)
Quarter: 2012Q4

REPORT INFORMATION
  Report Type: 
  Country: CN (occurrence: CN)
  Receive Date: 20121102
  Receipt Date: 20121102
  Transmission Date: 20130627
  Serious: Yes (Other)
  Sender: FDA-Public Use
  Company Number: CN-JNJFOC-20121015097

PATIENT
  Age: 10 Year
  Sex: Male

DRUGS (2)
  1. CONCERTA [Suspect]
     Indication: HYPERKINESIA
     Route: 048
     Dates: start: 201209, end: 201209
  2. CONCERTA [Suspect]
     Indication: HYPERKINESIA
     Dosage: 18 mg x 15 days,
once in a day in the morning
     Route: 048
     Dates: start: 201204, end: 201207

REACTIONS (5)
  - Conversion disorder [Unknown]
  - Tachycardia [Recovered/Resolved]
  - Insomnia [Unknown]
  - Logorrhoea [Unknown]
  - Treatment noncompliance [Unknown]
